FAERS Safety Report 7605291-1 (Version None)
Quarter: 2011Q3

REPORT INFORMATION
  Report Type: 
  Country: None (occurrence: None)
  Receive Date: 20110713
  Receipt Date: 20110708
  Transmission Date: 20111222
  Serious: Yes (Life-Threatening, Disabling)
  Sender: FDA-Public Use
  Company Number: JP-ASTRAZENECA-2011SE29544

PATIENT
  Age: 72 Year
  Sex: Male

DRUGS (4)
  1. MUCOSTA [Concomitant]
     Indication: GASTRIC ULCER
     Route: 048
     Dates: start: 20080908, end: 20080916
  2. PRAMIEL [Concomitant]
     Indication: NAUSEA
     Route: 048
     Dates: start: 20080905, end: 20080908
  3. OMEPRAZOLE [Suspect]
     Indication: GASTRIC ULCER
     Route: 048
     Dates: start: 20080908, end: 20080916
  4. BERIZYM [Concomitant]
     Indication: NAUSEA
     Route: 048
     Dates: start: 20080905, end: 20080908

REACTIONS (3)
  - HYPONATRAEMIA [None]
  - MULTI-ORGAN FAILURE [None]
  - NEUROPATHY PERIPHERAL [None]
